FAERS Safety Report 13678828 (Version 1)
Quarter: 2017Q2

REPORT INFORMATION
  Report Type: Report from Study
  Country: US (occurrence: US)
  Receive Date: 20170622
  Receipt Date: 20170622
  Transmission Date: 20170830
  Serious: Yes (Other)
  Sender: FDA-Public Use
  Company Number: US-JNJFOC-20160722516

PATIENT
  Age: 62 Year
  Sex: Male

DRUGS (18)
  1. ACYCLOVIR. [Concomitant]
     Active Substance: ACYCLOVIR
  2. HYDROCODONE/PARACETAMOL [Concomitant]
     Active Substance: ACETAMINOPHEN\HYDROCODONE BITARTRATE
  3. IBUPROFEN. [Concomitant]
     Active Substance: IBUPROFEN
  4. HYDROXYZINE [Concomitant]
     Active Substance: HYDROXYZINE HYDROCHLORIDE
  5. PRAVASTATIN. [Concomitant]
     Active Substance: PRAVASTATIN
  6. ATARAX [Concomitant]
     Active Substance: HYDROXYZINE HYDROCHLORIDE
  7. FLONASE [Concomitant]
     Active Substance: FLUTICASONE PROPIONATE
  8. COZAAR [Concomitant]
     Active Substance: LOSARTAN POTASSIUM
  9. IMBRUVICA [Suspect]
     Active Substance: IBRUTINIB
     Indication: MANTLE CELL LYMPHOMA
     Route: 048
     Dates: start: 20160406
  10. DIPHENOXYLATE HYDROCHLORIDE AND ATROPINE SULFATE [Concomitant]
     Active Substance: ATROPINE SULFATE\DIPHENOXYLATE HYDROCHLORIDE
  11. PHENERGAN W/ CODEINE [Concomitant]
     Active Substance: CODEINE PHOSPHATE\PROMETHAZINE HYDROCHLORIDE
  12. ASCORBIC ACID. [Concomitant]
     Active Substance: ASCORBIC ACID
  13. ALLIUM SATIVUM [Concomitant]
  14. NORCO [Concomitant]
     Active Substance: ACETAMINOPHEN\HYDROCODONE BITARTRATE
  15. PHENERGAN [Concomitant]
     Active Substance: PROMETHAZINE HYDROCHLORIDE
  16. LOSARTAN. [Concomitant]
     Active Substance: LOSARTAN
  17. VALSARTAN. [Concomitant]
     Active Substance: VALSARTAN
  18. FISH OIL [Concomitant]
     Active Substance: FISH OIL

REACTIONS (4)
  - Muscle spasms [Unknown]
  - Foot fracture [Unknown]
  - Staphylococcal infection [Unknown]
  - Skin ulcer [Unknown]

NARRATIVE: CASE EVENT DATE: 20160921
